FAERS Safety Report 4759860-7 (Version None)
Quarter: 2005Q3

REPORT INFORMATION
  Report Type: 
  Country: None (occurrence: None)
  Receive Date: 20050831
  Receipt Date: 20050831
  Transmission Date: 20060218
  Serious: Yes (Life-Threatening, Hospitalization)
  Sender: FDA-Public Use
  Company Number: None

PATIENT
  Sex: Female
  Weight: 70.7611 kg

DRUGS (1)
  1. ZOLOFT [Suspect]
     Indication: DEPRESSION
     Dosage: 1 DAILY

REACTIONS (7)
  - AGGRESSION [None]
  - ALCOHOLIC [None]
  - BIPOLAR DISORDER [None]
  - DEPRESSED MOOD [None]
  - IMPAIRED WORK ABILITY [None]
  - STRESS [None]
  - SUICIDE ATTEMPT [None]
